FAERS Safety Report 15801583 (Version 3)
Quarter: 2019Q1

REPORT INFORMATION
  Report Type: Spontaneous
  Country: CZ (occurrence: CZ)
  Receive Date: 20190109
  Receipt Date: 20190328
  Transmission Date: 20190417
  Serious: Yes (Hospitalization, Other)
  Sender: FDA-Public Use
  Company Number: CZ-MYLANLABS-2019M1001407

PATIENT
  Age: 62 Year
  Sex: Female

DRUGS (6)
  1. BEVACIZUMAB. [Suspect]
     Active Substance: BEVACIZUMAB
     Indication: LUNG NEOPLASM
     Dosage: 7.5 MILLIGRAM/KILOGRAM
     Route: 065
     Dates: start: 20160920
  2. CARBOPLATIN. [Suspect]
     Active Substance: CARBOPLATIN
     Indication: LUNG ADENOCARCINOMA
     Dosage: 450 MILLIGRAM, (DAY 1)
     Route: 065
     Dates: start: 201509
  3. AVASTIN [Suspect]
     Active Substance: BEVACIZUMAB
     Indication: LUNG ADENOCARCINOMA
     Dosage: 7.5 MILLIGRAM/KILOGRAM, ( 1,FROM JAN-2016 MAINTENANCE TREATMENT 7,5MG/KG)
     Route: 065
     Dates: start: 201509
  4. VINORELBINE [Suspect]
     Active Substance: VINORELBINE\VINORELBINE TARTRATE
     Indication: LUNG ADENOCARCINOMA
     Dosage: 100 MILLIGRAM, (DAY 1 AND 8)
     Route: 048
     Dates: start: 201509
  5. CARBOPLATIN. [Suspect]
     Active Substance: CARBOPLATIN
     Dosage: 75 MILLIGRAM/SQ. METER
     Route: 042
     Dates: start: 20160920, end: 20161208
  6. NAVELBINE [Suspect]
     Active Substance: VINORELBINE TARTRATE
     Indication: LUNG NEOPLASM
     Dosage: 60MG/M2 DAY 1 AND DAY 8
     Route: 048
     Dates: start: 20160920, end: 20161208

REACTIONS (6)
  - Arrhythmia [Recovered/Resolved]
  - Chronic obstructive pulmonary disease [Unknown]
  - Vomiting [Recovered/Resolved]
  - Nausea [Recovered/Resolved]
  - Decreased appetite [Recovered/Resolved]
  - Atrial fibrillation [Recovered/Resolved]

NARRATIVE: CASE EVENT DATE: 2016
